FAERS Safety Report 9684886 (Version 1)
Quarter: 2013Q4

REPORT INFORMATION
  Report Type: Spontaneous
  Country: ES (occurrence: ES)
  Receive Date: 20131112
  Receipt Date: 20131112
  Transmission Date: 20140711
  Serious: Yes (Death, Hospitalization)
  Sender: FDA-Public Use
  Company Number: ES-PAR PHARMACEUTICAL, INC-2013SCPR007753

PATIENT
  Sex: 0

DRUGS (3)
  1. RISPERIDONE [Suspect]
     Indication: HALLUCINATION, VISUAL
     Dosage: UNK, UNKNOWN
     Route: 065
  2. FUROSEMIDE [Suspect]
     Indication: ACUTE MYOCARDIAL INFARCTION
     Dosage: UNK, UNKNOWN
     Route: 042
  3. FUROSEMIDE [Suspect]
     Indication: ACUTE PULMONARY OEDEMA

REACTIONS (3)
  - Sepsis [Fatal]
  - Pemphigoid [Fatal]
  - Death [Fatal]
